FAERS Safety Report 20093874 (Version 1)
Quarter: 2021Q4

REPORT INFORMATION
  Report Type: Spontaneous
  Country: PT (occurrence: PT)
  Receive Date: 20211121
  Receipt Date: 20211121
  Transmission Date: 20220303
  Serious: Yes (Other)
  Sender: FDA-Public Use
  Company Number: PT-ABBVIE-21K-130-4166575-00

PATIENT
  Age: 1 Year
  Sex: Male

DRUGS (1)
  1. VALPROATE SODIUM [Suspect]
     Active Substance: VALPROATE SODIUM
     Indication: Epilepsy
     Dosage: DOSE INCREMENTS EVERY 5 DAYS FOR 1 ML AND 2 ML
     Route: 048
     Dates: start: 201912, end: 201912

REACTIONS (9)
  - Inability to crawl [Recovered/Resolved]
  - Bruxism [Recovered/Resolved]
  - Crying [Recovered/Resolved]
  - Inability to crawl [Recovered/Resolved]
  - Decreased appetite [Recovered/Resolved]
  - Tremor [Recovered/Resolved]
  - Asthenia [Recovered/Resolved]
  - Insomnia [Recovered/Resolved]
  - Vomiting [Recovered/Resolved]

NARRATIVE: CASE EVENT DATE: 20191201
